FAERS Safety Report 5341067-6 (Version None)
Quarter: 2007Q2

REPORT INFORMATION
  Report Type: 
  Country: None (occurrence: None)
  Receive Date: 20070530
  Receipt Date: 20070521
  Transmission Date: 20071010
  Serious: Yes (Hospitalization)
  Sender: FDA-Public Use
  Company Number: 2007BI008948

PATIENT
  Age: 34 Year
  Sex: Male

DRUGS (6)
  1. NATALIZUMAB [Suspect]
     Indication: MULTIPLE SCLEROSIS
     Dosage: 300 MG.QM; IV
     Route: 042
     Dates: start: 20070130
  2. DETROL [Concomitant]
  3. CALCIUM CHLORIDE [Concomitant]
  4. XANAX [Concomitant]
  5. VIAGRA [Concomitant]
  6. BACLOFEN [Concomitant]

REACTIONS (5)
  - DIARRHOEA [None]
  - GAIT DISTURBANCE [None]
  - HAEMATOCRIT DECREASED [None]
  - MULTIPLE SCLEROSIS [None]
  - RED BLOOD CELL COUNT DECREASED [None]
